FAERS Safety Report 22153049 (Version 1)
Quarter: 2023Q1

REPORT INFORMATION
  Report Type: Spontaneous
  Country: US (occurrence: US)
  Receive Date: 20230329
  Receipt Date: 20230329
  Transmission Date: 20230417
  Serious: Yes (Death, Hospitalization, Other)
  Sender: FDA-Public Use
  Company Number: US-DSJP-DSU-2023-112271

PATIENT
  Sex: Female

DRUGS (1)
  1. ENHERTU [Suspect]
     Active Substance: FAM-TRASTUZUMAB DERUXTECAN-NXKI
     Indication: Breast cancer metastatic
     Dosage: UNK (STARTED IN DEC-2022 OR JAN-2023)
     Route: 065
     Dates: end: 2023

REACTIONS (4)
  - Death [Fatal]
  - Disease progression [Unknown]
  - Interstitial lung disease [Unknown]
  - Pneumonitis [Unknown]

NARRATIVE: CASE EVENT DATE: 20230201
